FAERS Safety Report 12251046 (Version 2)
Quarter: 2016Q2

REPORT INFORMATION
  Report Type: Spontaneous
  Country: DE (occurrence: DE)
  Receive Date: 20160409
  Receipt Date: 20160617
  Transmission Date: 20160815
  Serious: Yes (Death, Hospitalization, Other)
  Sender: FDA-Public Use
  Company Number: DE-UCBSA-2016012803

PATIENT
  Sex: Male

DRUGS (4)
  1. LEVETIRACETAM UCB [Suspect]
     Active Substance: LEVETIRACETAM
     Dosage: 500 MG, 2X/DAY (BID), DOSE INCREASED
     Dates: start: 2015, end: 2015
  2. ORFIRIL [Concomitant]
     Active Substance: VALPROIC ACID
     Indication: PRODUCT USED FOR UNKNOWN INDICATION
     Dosage: UNK
  3. LEVETIRACETAM UCB [Suspect]
     Active Substance: LEVETIRACETAM
     Indication: PRODUCT USED FOR UNKNOWN INDICATION
     Dosage: 250 MG, ONCE DAILY (QD), 1 TABLET IN THE MORNING
     Dates: end: 2015
  4. LEVETIRACETAM UCB [Suspect]
     Active Substance: LEVETIRACETAM
     Dosage: 1000 MG, 2X/DAY (BID)
     Dates: start: 2015, end: 2015

REACTIONS (6)
  - Bronchitis [Unknown]
  - Pneumonia [Unknown]
  - Off label use [Unknown]
  - Drug intolerance [Unknown]
  - Underdose [Unknown]
  - Coma [Fatal]

NARRATIVE: CASE EVENT DATE: 2015
